FAERS Safety Report 7951105-X (Version None)
Quarter: 2011Q4

REPORT INFORMATION
  Report Type: 
  Country: None (occurrence: None)
  Receive Date: 20111201
  Receipt Date: 20111128
  Transmission Date: 20120403
  Serious: Yes (Death, Hospitalization)
  Sender: FDA-Public Use
  Company Number: BE-EISAI INC-E2020-09885-SPO-BE

PATIENT
  Sex: Female
  Weight: 48.5 kg

DRUGS (2)
  1. PAROXETINE HCL [Concomitant]
     Dates: start: 20080301
  2. ARICEPT [Suspect]
     Route: 048
     Dates: start: 20100501, end: 20111018

REACTIONS (3)
  - MULTI-ORGAN FAILURE [None]
  - HEPATITIS [None]
  - CARDIAC FAILURE [None]
